FAERS Safety Report 23644334 (Version 6)
Quarter: 2025Q2

REPORT INFORMATION
  Report Type: Spontaneous
  Country: US (occurrence: US)
  Receive Date: 20240318
  Receipt Date: 20250502
  Transmission Date: 20250716
  Serious: Yes (Other)
  Sender: PFIZER
  Company Number: US-PFIZER INC-202400064778

PATIENT
  Age: 37 Year
  Sex: Female

DRUGS (6)
  1. CIBINQO [Suspect]
     Active Substance: ABROCITINIB
     Indication: Psoriasis
     Dosage: 100MG PINK TABLET ONE A DAY BY MOUTH
     Route: 048
     Dates: start: 2023
  2. CIBINQO [Suspect]
     Active Substance: ABROCITINIB
     Dosage: HALF TABLET A DAY
     Route: 048
     Dates: start: 2023
  3. CIBINQO [Suspect]
     Active Substance: ABROCITINIB
     Dosage: 100 MG, 1X/DAY
     Route: 048
     Dates: start: 202308, end: 202311
  4. CIBINQO [Suspect]
     Active Substance: ABROCITINIB
     Dosage: 100 MG, 1X/DAY
     Route: 048
     Dates: end: 202403
  5. CIBINQO [Suspect]
     Active Substance: ABROCITINIB
     Dosage: TAKING IT EVERY OTHER DAY
  6. CIBINQO [Suspect]
     Active Substance: ABROCITINIB
     Dosage: 100 MG, 1X/DAY

REACTIONS (7)
  - Multiple sclerosis [Unknown]
  - Off label use [Unknown]
  - Wrong technique in product usage process [Unknown]
  - Intentional product misuse [Unknown]
  - Haemorrhage [Unknown]
  - Pain in extremity [Unknown]
  - Psoriasis [Unknown]

NARRATIVE: CASE EVENT DATE: 20230101
